FAERS Safety Report 5423190-0 (Version None)
Quarter: 2007Q3

REPORT INFORMATION
  Report Type: 
  Country: None (occurrence: None)
  Receive Date: 20070730
  Receipt Date: 20070329
  Transmission Date: 20080115
  Serious: Yes (Hospitalization, Other)
  Sender: FDA-Public Use
  Company Number: 200616987BWH

PATIENT
  Age: 70 Year
  Sex: Male

DRUGS (6)
  1. AVELOX [Suspect]
     Indication: BRONCHITIS
     Dosage: 400 MG, TOTAL DAILY, ORAL
     Route: 048
     Dates: start: 20061211, end: 20061216
  2. COUMADIN [Concomitant]
  3. LEVAQUIN [Concomitant]
  4. DIFLUCAN [Concomitant]
  5. TYGACIL [Concomitant]
  6. DOXYCYCLINE [Concomitant]

REACTIONS (3)
  - FUNGAL INFECTION [None]
  - INTERNATIONAL NORMALISED RATIO INCREASED [None]
  - PROTHROMBIN TIME PROLONGED [None]
